FAERS Safety Report 9963999 (Version 1)
Quarter: 2014Q1

REPORT INFORMATION
  Report Type: Spontaneous
  Country: US (occurrence: US)
  Receive Date: 20140305
  Receipt Date: 20140305
  Transmission Date: 20141002
  Serious: No
  Sender: FDA-Public Use
  Company Number: US-BAYER-2014-033969

PATIENT
  Age: 42 Year
  Sex: Female

DRUGS (1)
  1. BETASERON [Suspect]
     Indication: MULTIPLE SCLEROSIS
     Dosage: UNK
     Dates: start: 20010508, end: 2004

REACTIONS (7)
  - Influenza like illness [None]
  - Muscular weakness [None]
  - Gait disturbance [None]
  - Epistaxis [None]
  - Nail ridging [None]
  - Dry skin [None]
  - Pruritus [None]
